FAERS Safety Report 9516212 (Version 1)
Quarter: 2013Q1

REPORT INFORMATION
  Report Type: Spontaneous
  Country: US (occurrence: None)
  Receive Date: 20130305
  Receipt Date: 20130305
  Transmission Date: 20140127
  Serious: Yes (Other)
  Sender: FDA-Public Use
  Company Number: 163-21880-12080936

PATIENT
  Age: 65 Year
  Sex: Male
  Weight: 94.8 kg

DRUGS (4)
  1. REVLIMID [Suspect]
     Indication: PLASMA CELL MYELOMA
     Dosage: 10 MG, 21 IN 28 D, PO
     Route: 048
     Dates: start: 20120108
  2. NEURONTIN (GABAPENTIN) [Concomitant]
  3. SYMBICORT (SYMBICORT TURBUHALER ^DRACO^) [Concomitant]
  4. EXFORGE (AMLODIPINE W/VALSARTAN) [Concomitant]

REACTIONS (4)
  - Pneumonia viral [None]
  - Fatigue [None]
  - Nausea [None]
  - Weight decreased [None]
